FAERS Safety Report 7402771-9 (Version None)
Quarter: 2011Q2

REPORT INFORMATION
  Report Type: 
  Country: None (occurrence: None)
  Receive Date: 20110408
  Receipt Date: 20110325
  Transmission Date: 20111010
  Serious: Yes (Hospitalization, Other)
  Sender: FDA-Public Use
  Company Number: PHHY2011US13046

PATIENT
  Sex: Female

DRUGS (6)
  1. FEMARA [Suspect]
     Indication: BREAST CANCER FEMALE
     Dosage: 2.5 MG, DAILY QHS
     Route: 048
  2. TRIAMTERENE AND HYDROCHLOROTHIAZID [Concomitant]
     Dosage: 37.5/25 MG DAILY
  3. ALBUTEROL [Concomitant]
     Dosage: 2-3 TIMES PER DAY PRN
  4. CLONIDINE [Concomitant]
     Dosage: 0.2 MG DAILY
  5. VERAPAMIL [Concomitant]
     Dosage: 240 MG DAILY
  6. OMEPRAZOLE [Concomitant]
     Dosage: 20 MG DAILY
     Route: 048

REACTIONS (17)
  - AZOTAEMIA [None]
  - BLOOD GLUCOSE INCREASED [None]
  - WHEEZING [None]
  - ORTHOPNOEA [None]
  - ANAEMIA [None]
  - DIASTOLIC DYSFUNCTION [None]
  - HEART RATE INCREASED [None]
  - DYSPNOEA [None]
  - BLOOD CREATININE INCREASED [None]
  - ASTHMA [None]
  - LEFT VENTRICULAR DYSFUNCTION [None]
  - PERICARDIAL EFFUSION [None]
  - OEDEMA [None]
  - BLOOD PRESSURE SYSTOLIC INCREASED [None]
  - COUGH [None]
  - RENAL FAILURE ACUTE [None]
  - OSTEOARTHRITIS [None]
